FAERS Safety Report 7419124-X (Version None)
Quarter: 2011Q2

REPORT INFORMATION
  Report Type: 
  Country: None (occurrence: None)
  Receive Date: 20110415
  Receipt Date: 20110321
  Transmission Date: 20111010
  Serious: No
  Sender: FDA-Public Use
  Company Number: US-B.I. PHARMACEUTICALS,INC./RIDGEFIELD-2011-BP-08781BP

PATIENT
  Sex: Male

DRUGS (4)
  1. PRADAXA [Suspect]
     Indication: CEREBROVASCULAR ACCIDENT PROPHYLAXIS
     Dosage: 300 MG
     Route: 048
     Dates: start: 20110314
  2. MULTAQ [Concomitant]
  3. PRADAXA [Suspect]
     Indication: ATRIAL FIBRILLATION
  4. CARDIZEM [Concomitant]
     Indication: CARDIAC DISORDER
     Dosage: 180 MG
     Route: 048

REACTIONS (5)
  - DYSPNOEA [None]
  - COUGH [None]
  - MUSCULOSKELETAL DISCOMFORT [None]
  - DIARRHOEA [None]
  - MUSCLE TIGHTNESS [None]
